FAERS Safety Report 14522679 (Version 2)
Quarter: 2018Q1

REPORT INFORMATION
  Report Type: Spontaneous
  Country: TH (occurrence: TH)
  Receive Date: 20180212
  Receipt Date: 20180223
  Transmission Date: 20180509
  Serious: Yes (Other)
  Sender: FDA-Public Use
  Company Number: PHHY2018TH017724

PATIENT
  Age: 62 Year
  Sex: Female

DRUGS (5)
  1. ZYKADIA [Suspect]
     Active Substance: CERITINIB
     Dosage: 600 MG, QD
     Route: 048
  2. ZYKADIA [Suspect]
     Active Substance: CERITINIB
     Dosage: 450 MG, QD
     Route: 048
  3. LOPERAMIDE [Concomitant]
     Active Substance: LOPERAMIDE
     Indication: PRODUCT USED FOR UNKNOWN INDICATION
     Dosage: UNK UNK, PRN
     Route: 048
  4. METOCLOPRAMIDE. [Concomitant]
     Active Substance: METOCLOPRAMIDE
     Indication: PRODUCT USED FOR UNKNOWN INDICATION
     Dosage: UNK UNK, PRN
     Route: 048
  5. ZYKADIA [Suspect]
     Active Substance: CERITINIB
     Indication: NON-SMALL CELL LUNG CANCER
     Dosage: 750 MG, QD
     Route: 048
     Dates: start: 201503

REACTIONS (8)
  - Electrocardiogram QT prolonged [Recovering/Resolving]
  - Vomiting [Recovered/Resolved]
  - Nausea [Recovered/Resolved]
  - Weight decreased [Unknown]
  - Dyspnoea [Unknown]
  - Diarrhoea [Unknown]
  - Hypokalaemia [Recovered/Resolved]
  - Decreased appetite [Recovered/Resolved]
